FAERS Safety Report 5985887-3 (Version None)
Quarter: 2008Q4

REPORT INFORMATION
  Report Type: 
  Country: None (occurrence: None)
  Receive Date: 20081209
  Receipt Date: 20081201
  Transmission Date: 20090506
  Serious: Yes (Other)
  Sender: FDA-Public Use
  Company Number: US-RANBAXY-2008US-18246

PATIENT

DRUGS (3)
  1. ISOTRETINOIN [Suspect]
     Indication: DRUG USE FOR UNKNOWN INDICATION
     Dosage: 40 MG, TID
     Route: 048
     Dates: start: 20080416, end: 20080924
  2. ISOTRETINOIN [Suspect]
     Dosage: 20 MG, UNK
     Route: 048
  3. CRYSELLE [Concomitant]
     Indication: CONTRACEPTION

REACTIONS (3)
  - GENITAL HAEMORRHAGE [None]
  - PREGNANCY [None]
  - VAGINAL DISCHARGE [None]
